FAERS Safety Report 5305068-6 (Version None)
Quarter: 2007Q2

REPORT INFORMATION
  Report Type: 
  Country: None (occurrence: None)
  Receive Date: 20070417
  Receipt Date: 20070405
  Transmission Date: 20071010
  Serious: Yes (Hospitalization)
  Sender: FDA-Public Use
  Company Number: 2007BI004591

PATIENT
  Age: 55 Year
  Sex: Female
  Weight: 71.6683 kg

DRUGS (11)
  1. AVONEX [Suspect]
     Indication: MULTIPLE SCLEROSIS
     Dosage: 30 UG;QW;IM
     Route: 030
     Dates: start: 20020601, end: 20030801
  2. AVONEX [Suspect]
     Indication: MULTIPLE SCLEROSIS
     Dosage: 30 UG;QW;IM
     Route: 030
     Dates: start: 20030801
  3. CELLCEPT [Concomitant]
  4. PLAQUENIL [Concomitant]
  5. EVOXAC [Concomitant]
  6. SYNTHROID [Concomitant]
  7. EFFEXOR XR [Concomitant]
  8. TOPAMAX [Concomitant]
  9. NEURONTIN [Concomitant]
  10. PROVIGIL [Concomitant]
  11. ZANAFLEX [Concomitant]

REACTIONS (4)
  - COLITIS ULCERATIVE [None]
  - DEHYDRATION [None]
  - INFLUENZA LIKE ILLNESS [None]
  - VOMITING [None]
